FAERS Safety Report 7330114-8 (Version None)
Quarter: 2011Q1

REPORT INFORMATION
  Report Type: 
  Country: None (occurrence: None)
  Receive Date: 20110303
  Receipt Date: 20110207
  Transmission Date: 20110831
  Serious: Yes (Hospitalization)
  Sender: FDA-Public Use
  Company Number: US-BAYER-201029511NA

PATIENT
  Sex: Female

DRUGS (2)
  1. YAZ [Suspect]
     Indication: ACNE
  2. YASMIN [Suspect]
     Indication: ACNE

REACTIONS (6)
  - ABDOMINAL PAIN [None]
  - NAUSEA [None]
  - INJURY [None]
  - CHOLECYSTITIS [None]
  - VOMITING [None]
  - CHOLELITHIASIS [None]
